FAERS Safety Report 25934147 (Version 1)
Quarter: 2025Q4

REPORT INFORMATION
  Report Type: Report from Study
  Country: IN (occurrence: IN)
  Receive Date: 20251017
  Receipt Date: 20251017
  Transmission Date: 20260117
  Serious: Yes (Death, Other)
  Sender: DAIICHI
  Company Number: IN-AstraZeneca-CH-00970562A

PATIENT
  Age: 54 Year
  Sex: Female

DRUGS (1)
  1. ENHERTU [Suspect]
     Active Substance: FAM-TRASTUZUMAB DERUXTECAN-NXKI
     Indication: HER2 low breast cancer
     Dosage: 200 MG, ONCE EVERY 3 WK
     Route: 041

REACTIONS (6)
  - Kidney infection [Fatal]
  - Seizure [Unknown]
  - Renal failure [Unknown]
  - Gait disturbance [Unknown]
  - Urine output decreased [Unknown]
  - Restlessness [Unknown]

NARRATIVE: CASE EVENT DATE: 20250928
